FAERS Safety Report 20712632 (Version 1)
Quarter: 2022Q2

REPORT INFORMATION
  Report Type: Report from Study
  Country: US (occurrence: US)
  Receive Date: 20220415
  Receipt Date: 20220415
  Transmission Date: 20220720
  Serious: Yes (Other)
  Sender: FDA-Public Use
  Company Number: US-ETON PHARMACEUTICALS, INC-2022ETO000044

PATIENT

DRUGS (2)
  1. ALKINDI SPRINKLE [Suspect]
     Active Substance: HYDROCORTISONE
     Indication: Metabolic myopathy
     Dosage: 1 MG, BID
     Route: 048
     Dates: start: 20220208
  2. ALKINDI SPRINKLE [Suspect]
     Active Substance: HYDROCORTISONE
     Dosage: 2 MG, QD
     Route: 048
     Dates: start: 20220208

REACTIONS (2)
  - Gastric disorder [Unknown]
  - Increased appetite [Unknown]

NARRATIVE: CASE EVENT DATE: 20220101
